FAERS Safety Report 5931965-4 (Version None)
Quarter: 2008Q4

REPORT INFORMATION
  Report Type: 
  Country: None (occurrence: None)
  Receive Date: 20081027
  Receipt Date: 20081023
  Transmission Date: 20090506
  Serious: Yes (Life-Threatening, Other)
  Sender: FDA-Public Use
  Company Number: PHEH2008US09523

PATIENT
  Sex: Male

DRUGS (1)
  1. RECLAST [Suspect]
     Indication: OSTEOPOROSIS
     Dosage: UNK, UNK
     Dates: start: 20080827

REACTIONS (6)
  - ARTHRALGIA [None]
  - DYSSTASIA [None]
  - HEADACHE [None]
  - MYALGIA [None]
  - PAIN [None]
  - SUICIDAL IDEATION [None]
